FAERS Safety Report 5900811-7 (Version None)
Quarter: 2008Q3

REPORT INFORMATION
  Report Type: 
  Country: None (occurrence: None)
  Receive Date: 20080929
  Receipt Date: 20080918
  Transmission Date: 20090109
  Serious: Yes (Other)
  Sender: FDA-Public Use
  Company Number: US-JNJFOC-20080904273

PATIENT
  Sex: Female

DRUGS (18)
  1. RAZADYNE [Suspect]
     Indication: DRUG USE FOR UNKNOWN INDICATION
     Route: 048
  2. ROZEREM [Suspect]
     Indication: SLEEP DISORDER
     Route: 048
  3. AMBIEN [Concomitant]
  4. METFORMIN HCL [Concomitant]
  5. HYDROCHLOROTHIAZIDE [Concomitant]
  6. CELEXA [Concomitant]
  7. LIPITOR [Concomitant]
  8. BACLOFEN [Concomitant]
  9. PRILOSEC [Concomitant]
  10. GLYBURIDE [Concomitant]
  11. NORTRIPTYLINE HCL [Concomitant]
  12. PROCHLORPERAZINE MALEATE [Concomitant]
  13. LISINOPRIL [Concomitant]
  14. CHANTIX [Concomitant]
  15. SINGULAIR [Concomitant]
  16. ALBUTEROL [Concomitant]
  17. GEODON [Concomitant]
  18. ADIPEX [Concomitant]

REACTIONS (4)
  - ABNORMAL DREAMS [None]
  - DRUG DISPENSING ERROR [None]
  - SOMNOLENCE [None]
  - WRONG DRUG ADMINISTERED [None]
